FAERS Safety Report 7449902-2 (Version None)
Quarter: 2011Q1

REPORT INFORMATION
  Report Type: 
  Country: None (occurrence: None)
  Receive Date: 20110302
  Receipt Date: 20101108
  Transmission Date: 20110831
  Serious: No
  Sender: FDA-Public Use
  Company Number: 018708

PATIENT
  Sex: Female
  Weight: 115 kg

DRUGS (4)
  1. CIMZIA [Suspect]
  2. PENTASA [Concomitant]
  3. PREVACID [Concomitant]
  4. CIMZIA [Suspect]
     Indication: CROHN'S DISEASE
     Dosage: DOSE 2 SHOTS, EVERY 2 WEEKS THEN ONCE MONTHLY SUBCUTANEOUS, 400 MG 1X/4 WEEKS SUBCUTANEOUS
     Route: 058
     Dates: start: 20100911

REACTIONS (6)
  - BODY TEMPERATURE DECREASED [None]
  - INJECTION SITE HAEMATOMA [None]
  - INJECTION SITE WARMTH [None]
  - INJECTION SITE DISCOLOURATION [None]
  - INJECTION SITE HAEMORRHAGE [None]
  - INJECTION SITE SWELLING [None]
